FAERS Safety Report 6190929-9 (Version None)
Quarter: 2009Q2

REPORT INFORMATION
  Report Type: 
  Country: None (occurrence: None)
  Receive Date: 20090513
  Receipt Date: 20090506
  Transmission Date: 20091009
  Serious: Yes (Death)
  Sender: FDA-Public Use
  Company Number: 1000006195

PATIENT
  Age: 40 Year
  Sex: Female

DRUGS (4)
  1. CELEXA [Suspect]
  2. ETHANOL [Suspect]
  3. ZOPICLONE (TABLETS) [Suspect]
     Dosage: (1 DOSAGE FORMS, AS REQUIRED), ORAL
     Route: 048
  4. TYLENOL W/ CODEINE [Concomitant]

REACTIONS (2)
  - COMPLETED SUICIDE [None]
  - OVERDOSE [None]
